FAERS Safety Report 10174778 (Version 1)
Quarter: 2014Q2

REPORT INFORMATION
  Report Type: Spontaneous
  Country: US (occurrence: US)
  Receive Date: 20140515
  Receipt Date: 20140515
  Transmission Date: 20141212
  Serious: Yes (Other)
  Sender: FDA-Public Use
  Company Number: US-PFIZER INC-2014132556

PATIENT
  Age: 57 Year
  Sex: Female
  Weight: 72.56 kg

DRUGS (4)
  1. LYRICA [Suspect]
     Indication: VIITH NERVE PARALYSIS
     Dosage: 75 MG, DAILY
     Dates: start: 201312
  2. LYRICA [Suspect]
     Dosage: 150 MG, DAILY
  3. LYRICA [Suspect]
     Dosage: 300 MG, DAILY
     Dates: start: 201404
  4. LYRICA [Suspect]
     Dosage: UNK

REACTIONS (4)
  - Chronic inflammatory demyelinating polyradiculoneuropathy [Unknown]
  - Anxiety [Unknown]
  - Vision blurred [Unknown]
  - Mood swings [Unknown]
